FAERS Safety Report 10133634 (Version 1)
Quarter: 2014Q2

REPORT INFORMATION
  Report Type: Spontaneous
  Country: CA (occurrence: CA)
  Receive Date: 20140428
  Receipt Date: 20140428
  Transmission Date: 20141212
  Serious: Yes (Other)
  Sender: FDA-Public Use
  Company Number: CA-TEVA-477849USA

PATIENT
  Age: 29 Year
  Sex: Male

DRUGS (1)
  1. PURINETHOL [Suspect]
     Indication: COLITIS ULCERATIVE
     Dosage: 50 MILLIGRAM DAILY;

REACTIONS (3)
  - Haematochezia [Unknown]
  - Flatulence [Unknown]
  - Abdominal distension [Unknown]
